FAERS Safety Report 7752246-2 (Version None)
Quarter: 2011Q3

REPORT INFORMATION
  Report Type: 
  Country: None (occurrence: None)
  Receive Date: 20110915
  Receipt Date: 20110907
  Transmission Date: 20111222
  Serious: Yes (Hospitalization)
  Sender: FDA-Public Use
  Company Number: CH-AMGEN-US374564

PATIENT
  Age: 65 Year
  Sex: Female
  Weight: 64 kg

DRUGS (3)
  1. ENBREL [Suspect]
     Indication: RHEUMATOID ARTHRITIS
     Dosage: 50 MG, QWK
     Route: 058
     Dates: start: 20081015, end: 20081031
  2. METHOTREXATE SODIUM [Suspect]
     Dosage: 20 MG, WEEKLY
     Route: 058
     Dates: start: 20060101, end: 20081031
  3. PREDNISONE [Concomitant]
     Indication: RHEUMATOID ARTHRITIS
     Dosage: UNK UNK, UNK
     Dates: start: 19740615

REACTIONS (2)
  - REFUSAL OF TREATMENT BY PATIENT [None]
  - INTERSTITIAL LUNG DISEASE [None]
